FAERS Safety Report 16244839 (Version 3)
Quarter: 2019Q3

REPORT INFORMATION
  Report Type: Report from Study
  Country: DE (occurrence: DE)
  Receive Date: 20190426
  Receipt Date: 20190710
  Transmission Date: 20191004
  Serious: Yes (Hospitalization, Disabling, Other)
  Sender: FDA-Public Use
  Company Number: DE-BRISTOL-MYERS SQUIBB COMPANY-BMS-2019-038543

PATIENT
  Age: 51 Year
  Sex: Male

DRUGS (2)
  1. LEVOTHYROXIN [Concomitant]
     Active Substance: LEVOTHYROXINE
     Indication: METABOLIC DISORDER
     Dosage: 25 MICROGRAM
     Route: 065
  2. NIVOLUMAB [Suspect]
     Active Substance: NIVOLUMAB
     Indication: RENAL CELL CARCINOMA
     Dosage: 3 MILLIGRAM/KILOGRAM, Q2WK
     Route: 042
     Dates: start: 20180131

REACTIONS (8)
  - Haemolysis [Recovered/Resolved]
  - Anaemia [Recovered/Resolved]
  - Hypernatraemia [Recovered/Resolved]
  - Malignant neoplasm progression [Not Recovered/Not Resolved]
  - Hyperkalaemia [Recovered/Resolved]
  - Pyrexia [Recovered/Resolved]
  - Dermatitis [Recovered/Resolved]
  - Bronchitis [Recovered/Resolved]

NARRATIVE: CASE EVENT DATE: 20180131
